FAERS Safety Report 8365487-0 (Version None)
Quarter: 2012Q2

REPORT INFORMATION
  Report Type: 
  Country: None (occurrence: None)
  Receive Date: 20120516
  Receipt Date: 20120511
  Transmission Date: 20120825
  Serious: Yes (Hospitalization, Other)
  Sender: FDA-Public Use
  Company Number: US-BAYER-2012-047989

PATIENT
  Age: 28 Year
  Sex: Female
  Weight: 69 kg

DRUGS (11)
  1. YAZ [Suspect]
  2. METHERGINE [Concomitant]
     Dosage: 3 DOSES
     Route: 048
     Dates: start: 20080213
  3. CELEBREX [Concomitant]
     Dosage: 200 MG, DAILY
     Route: 048
  4. SEROQUEL [Concomitant]
     Dosage: 150 MG, HS
     Route: 048
  5. FLUOCINONIDE [Concomitant]
     Dosage: 0.05 %, UNK
     Route: 061
  6. DOCUSATE SODIUM [Concomitant]
     Dosage: UNK
     Route: 048
     Dates: start: 20080206
  7. HYDROCODONE BITARTRATE + ACETAMINOPHEN [Concomitant]
     Dosage: UNK
     Route: 048
     Dates: start: 20080206
  8. IBUPROFEN [Concomitant]
     Dosage: UNK
     Route: 048
     Dates: start: 20080206
  9. PERCOCET [Concomitant]
     Dosage: UNK
     Route: 048
     Dates: start: 20080213
  10. EFFEXOR XR [Concomitant]
     Dosage: 75 MG, DAILY
     Route: 048
  11. QUETIAPINE FUMARATE [Concomitant]
     Dosage: 50 MG, UNK
     Route: 048

REACTIONS (3)
  - PULMONARY EMBOLISM [None]
  - PULMONARY HAEMORRHAGE [None]
  - PULMONARY INFARCTION [None]
